FAERS Safety Report 5253548-4 (Version None)
Quarter: 2007Q1

REPORT INFORMATION
  Report Type: 
  Country: None (occurrence: None)
  Receive Date: 20070301
  Receipt Date: 20070220
  Transmission Date: 20070707
  Serious: Yes (Disabling)
  Sender: FDA-Public Use
  Company Number: GB-PFIZER INC-2007014353

PATIENT
  Sex: Male
  Weight: 200 kg

DRUGS (2)
  1. EPANUTIN [Suspect]
     Indication: EPILEPSY
     Route: 048
  2. VITAMIN B COMPLEX CAP [Concomitant]

REACTIONS (2)
  - JOINT INJURY [None]
  - WEIGHT INCREASED [None]
